FAERS Safety Report 20103185 (Version 1)
Quarter: 2021Q4

REPORT INFORMATION
  Report Type: Spontaneous
  Country: GB (occurrence: GB)
  Receive Date: 20211123
  Receipt Date: 20211123
  Transmission Date: 20220303
  Serious: Yes (Other)
  Sender: FDA-Public Use
  Company Number: GB-KOREA IPSEN Pharma-2021-28808

PATIENT
  Sex: Male

DRUGS (2)
  1. LANREOTIDE ACETATE [Suspect]
     Active Substance: LANREOTIDE ACETATE
     Indication: Acromegaly
     Dosage: DOSE AND STRENGTH: 60MG
     Route: 065
     Dates: start: 2014
  2. COVID-19 VACCINE NOS [Interacting]
     Active Substance: COVID-19 VACCINE NOS
     Indication: COVID-19 immunisation
     Route: 065

REACTIONS (6)
  - Foot operation [Unknown]
  - Surgical failure [Unknown]
  - Peripheral swelling [Unknown]
  - Arthralgia [Unknown]
  - Erythema [Unknown]
  - Drug interaction [Unknown]
